FAERS Safety Report 17605377 (Version 1)
Quarter: 2020Q1

REPORT INFORMATION
  Report Type: Spontaneous
  Country: US (occurrence: US)
  Receive Date: 20200330
  Receipt Date: 20200330
  Transmission Date: 20200409
  Serious: Yes (Other)
  Sender: FDA-Public Use
  Company Number: None

PATIENT
  Age: 52 Year
  Sex: Female
  Weight: 56.25 kg

DRUGS (1)
  1. RMFLEX [Suspect]
     Active Substance: DIETARY SUPPLEMENT
     Indication: MUSCULOSKELETAL PAIN
     Dosage: ??          QUANTITY:30 CAPSULE(S);?
     Route: 048
     Dates: start: 20200322, end: 20200323

REACTIONS (2)
  - Abdominal distension [None]
  - Constipation [None]

NARRATIVE: CASE EVENT DATE: 20200328
